FAERS Safety Report 20157631 (Version 1)
Quarter: 2021Q4

REPORT INFORMATION
  Report Type: Spontaneous
  Country: CA (occurrence: CA)
  Receive Date: 20211207
  Receipt Date: 20211207
  Transmission Date: 20220303
  Serious: Yes (Other)
  Sender: FDA-Public Use
  Company Number: CA-002147023-NVSC2021CA273780

PATIENT

DRUGS (1)
  1. RUXOLITINIB [Suspect]
     Active Substance: RUXOLITINIB
     Indication: Graft versus host disease
     Dosage: UNK
     Route: 065

REACTIONS (4)
  - Graft versus host disease [Unknown]
  - Malignant neoplasm progression [Unknown]
  - Therapy partial responder [Unknown]
  - Product use in unapproved indication [Unknown]
